FAERS Safety Report 6688203-7 (Version None)
Quarter: 2010Q2

REPORT INFORMATION
  Report Type: 
  Country: None (occurrence: None)
  Receive Date: 20100420
  Receipt Date: 20100409
  Transmission Date: 20101027
  Serious: Yes (Other)
  Sender: FDA-Public Use
  Company Number: US-PFIZER INC-2010045874

PATIENT
  Sex: Female

DRUGS (1)
  1. CHANTIX [Suspect]
     Dosage: UNK
     Dates: start: 20070101

REACTIONS (6)
  - ANXIETY [None]
  - BONE PAIN [None]
  - DEPRESSION [None]
  - FALL [None]
  - INSOMNIA [None]
  - LIMB INJURY [None]
